FAERS Safety Report 15111339 (Version 1)
Quarter: 2018Q3

REPORT INFORMATION
  Report Type: Spontaneous
  Country: US (occurrence: US)
  Receive Date: 20180705
  Receipt Date: 20180705
  Transmission Date: 20181010
  Serious: No
  Sender: FDA-Public Use
  Company Number: US-SA-2018SA178210

PATIENT
  Age: 74 Year
  Sex: Female

DRUGS (2)
  1. TOUJEO [Concomitant]
     Active Substance: INSULIN GLARGINE
     Indication: DIABETES MELLITUS
     Route: 065
  2. LANTUS SOLOSTAR [Suspect]
     Active Substance: INSULIN GLARGINE
     Indication: DIABETES MELLITUS
     Dosage: 42 U, QD
     Route: 065

REACTIONS (4)
  - Tremor [Unknown]
  - Blood glucose decreased [Unknown]
  - Weight increased [Unknown]
  - Hyperhidrosis [Unknown]
